FAERS Safety Report 4831690-7 (Version None)
Quarter: 2005Q4

REPORT INFORMATION
  Report Type: 
  Country: None (occurrence: None)
  Receive Date: 20051116
  Receipt Date: 20051104
  Transmission Date: 20060501
  Serious: Yes (Hospitalization)
  Sender: FDA-Public Use
  Company Number: 2005-134298-NL

PATIENT
  Age: 28 Year
  Sex: Male

DRUGS (9)
  1. NANDROLONE DECANOATE [Suspect]
     Indication: DRUG ABUSER
     Dosage: DF
     Route: 040
     Dates: start: 19950101, end: 20041101
  2. CHORIONIC GONADOTROPIN [Suspect]
     Indication: DRUG ABUSER
     Dosage: DF
     Route: 030
     Dates: start: 19950101, end: 20041101
  3. STANOZOLOL [Suspect]
     Indication: DRUG ABUSER
     Dosage: DF
     Dates: start: 19950101, end: 20041101
  4. HEPARIN-FRACTION, CALCIUM SALT [Concomitant]
  5. TORSEMIDE [Concomitant]
  6. ZOLPIDEM TARTRATE [Concomitant]
  7. PARACETAMOL [Concomitant]
  8. CLONAZEPAM [Concomitant]
  9. METOLAZONE [Concomitant]

REACTIONS (14)
  - DRUG ABUSER [None]
  - DYSLIPIDAEMIA [None]
  - DYSPNOEA [None]
  - DYSPNOEA EXERTIONAL [None]
  - EMBOLISM [None]
  - FATIGUE [None]
  - FEELING COLD [None]
  - HYPERHIDROSIS [None]
  - MALAISE [None]
  - NAUSEA [None]
  - NEPHROTIC SYNDROME [None]
  - OEDEMA PERIPHERAL [None]
  - RHABDOMYOLYSIS [None]
  - WEIGHT INCREASED [None]
